FAERS Safety Report 21593063 (Version 1)
Quarter: 2022Q4

REPORT INFORMATION
  Report Type: Spontaneous
  Country: US (occurrence: None)
  Receive Date: 20221111
  Receipt Date: 20221111
  Transmission Date: 20230113
  Serious: Yes (Death)
  Sender: FDA-Public Use
  Company Number: None

PATIENT
  Age: 70 Year
  Sex: Male
  Weight: 84.82 kg

DRUGS (16)
  1. WELIREG [Suspect]
     Active Substance: BELZUTIFAN
     Indication: Renal cancer
     Dosage: FREQUENCY : DAILY;?
     Route: 048
     Dates: start: 202109
  2. ACETAMINOPHEN [Concomitant]
  3. CALCITRIOL [Concomitant]
  4. CALCDIUM CARBONATE [Concomitant]
  5. CETIRIZINE [Concomitant]
  6. CLOPIDOGREL [Concomitant]
  7. ISOSORBIDE MONITRATE [Concomitant]
  8. LEVEMIR [Concomitant]
  9. METOPROLOL [Concomitant]
     Active Substance: METOPROLOL
  10. NITROGLYCERIN [Concomitant]
  11. NOVOLOG [Concomitant]
  12. PANTOPRAZOLE [Concomitant]
  13. SUMATRIPTAN [Concomitant]
     Active Substance: SUMATRIPTAN
  14. VELTASSA [Concomitant]
  15. VITAMIN D2 [Concomitant]
     Active Substance: ERGOCALCIFEROL
  16. WARFARIN [Concomitant]

REACTIONS (1)
  - Death [None]

NARRATIVE: CASE EVENT DATE: 20221109
